FAERS Safety Report 15904249 (Version 1)
Quarter: 2019Q1

REPORT INFORMATION
  Report Type: Spontaneous
  Country: GB (occurrence: GB)
  Receive Date: 20190204
  Receipt Date: 20190204
  Transmission Date: 20190417
  Serious: Yes (Hospitalization, Other)
  Sender: FDA-Public Use
  Company Number: GB-ABBVIE-19S-167-2644913-00

PATIENT
  Age: 60 Year
  Sex: Male

DRUGS (3)
  1. KENALOG [Suspect]
     Active Substance: TRIAMCINOLONE ACETONIDE
     Indication: PRODUCT USED FOR UNKNOWN INDICATION
     Dosage: HALF-LIFE OF TRIAMCINOLONE EXTENDED
     Route: 030
     Dates: start: 201806
  2. RITONAVIR. [Suspect]
     Active Substance: RITONAVIR
     Indication: ANTIRETROVIRAL THERAPY
     Route: 065
  3. DARUNAVIR [Suspect]
     Active Substance: DARUNAVIR
     Indication: ANTIRETROVIRAL THERAPY
     Route: 065

REACTIONS (5)
  - Labelled drug-drug interaction medication error [Unknown]
  - Hepatic pain [Unknown]
  - Diabetes mellitus [Unknown]
  - Liver function test increased [Unknown]
  - Abnormal loss of weight [Unknown]
